FAERS Safety Report 20871267 (Version 1)
Quarter: 2022Q2

REPORT INFORMATION
  Report Type: Spontaneous
  Country: US (occurrence: None)
  Receive Date: 20220524
  Receipt Date: 20220524
  Transmission Date: 20220721
  Serious: Yes (Other)
  Sender: FDA-Public Use
  Company Number: None

PATIENT
  Age: 63 Year
  Sex: Female
  Weight: 104.1 kg

DRUGS (9)
  1. BEBTELOVIMAB [Suspect]
     Active Substance: BEBTELOVIMAB
     Indication: COVID-19
     Route: 040
     Dates: start: 20220520, end: 20220520
  2. AMLODIPINE [Concomitant]
     Active Substance: AMLODIPINE BESYLATE
  3. ATENOLOL [Concomitant]
     Active Substance: ATENOLOL
  4. ATORVASTATIN [Concomitant]
     Active Substance: ATORVASTATIN
  5. FLUOXETINE [Concomitant]
     Active Substance: FLUOXETINE HYDROCHLORIDE
  6. insulin aspart and glargine [Concomitant]
  7. LIRAGLUTIDE [Concomitant]
     Active Substance: LIRAGLUTIDE
  8. LOSARTAN [Concomitant]
     Active Substance: LOSARTAN
  9. METHENAMINE [Concomitant]
     Active Substance: METHENAMINE

REACTIONS (7)
  - Headache [None]
  - Cough [None]
  - Fatigue [None]
  - Chest discomfort [None]
  - Pericarditis [None]
  - Myocarditis [None]
  - Infusion related reaction [None]

NARRATIVE: CASE EVENT DATE: 20220521
